FAERS Safety Report 7731076-1 (Version None)
Quarter: 2011Q3

REPORT INFORMATION
  Report Type: 
  Country: None (occurrence: None)
  Receive Date: 20110906
  Receipt Date: 20110906
  Transmission Date: 20111222
  Serious: No
  Sender: FDA-Public Use
  Company Number: None

PATIENT
  Age: 25 Month
  Sex: Female
  Weight: 10.886 kg

DRUGS (1)
  1. CHILDREN'S IBUPROFEN [Suspect]
     Indication: PYREXIA
     Dosage: 5 ML
     Route: 048
     Dates: start: 20110823, end: 20110824

REACTIONS (6)
  - PAIN [None]
  - LIQUID PRODUCT PHYSICAL ISSUE [None]
  - PYREXIA [None]
  - FEELING HOT [None]
  - VOMITING [None]
  - PRODUCT QUALITY ISSUE [None]
